FAERS Safety Report 6166990-4 (Version None)
Quarter: 2009Q2

REPORT INFORMATION
  Report Type: 
  Country: None (occurrence: None)
  Receive Date: 20090422
  Receipt Date: 20090407
  Transmission Date: 20091009
  Serious: Yes (Other)
  Sender: FDA-Public Use
  Company Number: 8044476

PATIENT
  Age: 27 Year
  Sex: Female

DRUGS (4)
  1. KEPPRA [Suspect]
     Indication: EPILEPSY
     Dosage: 3500 MG
     Dates: start: 20050801
  2. VIMPAT [Suspect]
     Indication: EPILEPSY
     Dates: start: 20090207, end: 20090227
  3. VIMPAT [Suspect]
     Indication: EPILEPSY
     Dosage: 200 MG 2/D
     Dates: start: 20090228
  4. LAMOTAD [Concomitant]

REACTIONS (3)
  - GRAND MAL CONVULSION [None]
  - PETIT MAL EPILEPSY [None]
  - STATUS EPILEPTICUS [None]
